FAERS Safety Report 12635493 (Version 1)
Quarter: 2016Q3

REPORT INFORMATION
  Report Type: Spontaneous
  Country: US (occurrence: US)
  Receive Date: 20160808
  Receipt Date: 20160808
  Transmission Date: 20161109
  Serious: No
  Sender: FDA-Public Use
  Company Number: US-ASTRAZENECA-2016SE72369

PATIENT
  Age: 26732 Day
  Sex: Male
  Weight: 122.9 kg

DRUGS (4)
  1. AMLOD BENAZP [Concomitant]
     Indication: HYPERTENSION
     Dosage: 5.0MG UNKNOWN
  2. BYDUREON [Suspect]
     Active Substance: EXENATIDE
     Indication: TYPE 2 DIABETES MELLITUS
     Route: 058
     Dates: start: 20160616
  3. METFORMIN [Concomitant]
     Active Substance: METFORMIN HYDROCHLORIDE
     Indication: DIABETES MELLITUS
     Dosage: 1000.0MG UNKNOWN
  4. MELOXICAM. [Concomitant]
     Active Substance: MELOXICAM
     Indication: ARTHRITIS

REACTIONS (3)
  - Circumstance or information capable of leading to medication error [Unknown]
  - Appetite disorder [Unknown]
  - Injection site haemorrhage [Unknown]

NARRATIVE: CASE EVENT DATE: 20160623
